FAERS Safety Report 9760449 (Version 1)
Quarter: 2013Q4

REPORT INFORMATION
  Report Type: Spontaneous
  Country: US (occurrence: US)
  Receive Date: 20131216
  Receipt Date: 20131216
  Transmission Date: 20140711
  Serious: No
  Sender: FDA-Public Use
  Company Number: US-PFIZER INC-2013358058

PATIENT
  Age: 76 Year
  Sex: Male
  Weight: 79.37 kg

DRUGS (7)
  1. LYRICA [Suspect]
     Indication: PLANTAR FASCIITIS
     Dosage: 75 MG, 1X/DAY
  2. ALFUZOSIN [Concomitant]
     Indication: PROSTATIC DISORDER
     Dosage: 10 MG, 1X/DAY
  3. CLOPIDOGREL [Concomitant]
     Indication: HYPERTENSION
     Dosage: 75 MG, 1X/DAY
  4. ASPIRIN [Concomitant]
     Indication: CARDIAC DISORDER
     Dosage: 81 MG, 1X/DAY
  5. SERTRALINE [Concomitant]
     Indication: NERVOUS SYSTEM DISORDER
     Dosage: 50 MG, 1X/DAY
  6. OMEPRAZOLE [Concomitant]
     Indication: GASTROOESOPHAGEAL REFLUX DISEASE
     Dosage: UNK, 2X/DAY
  7. ATORVASTATIN [Concomitant]
     Dosage: 20 MG, 1X/DAY

REACTIONS (2)
  - Off label use [Unknown]
  - Drug ineffective [Unknown]
